FAERS Safety Report 7199863-9 (Version None)
Quarter: 2010Q4

REPORT INFORMATION
  Report Type: 
  Country: None (occurrence: None)
  Receive Date: 20101228
  Receipt Date: 20101220
  Transmission Date: 20110411
  Serious: Yes (Death)
  Sender: FDA-Public Use
  Company Number: US-NAPPMUNDI-USA-2010-0059586

PATIENT
  Sex: Male

DRUGS (2)
  1. OXYCONTIN [Suspect]
     Indication: PROSTATE CANCER
     Dosage: 20 MG, Q12H
     Dates: start: 20101123
  2. OXYCODONE HCL [Concomitant]
     Indication: PROSTATE CANCER
     Dosage: 5 MG, Q3- 4H
     Dates: start: 20091019

REACTIONS (1)
  - PROSTATE CANCER [None]
